FAERS Safety Report 9602075 (Version 1)
Quarter: 2013Q4

REPORT INFORMATION
  Report Type: Spontaneous
  Country: FR (occurrence: FR)
  Receive Date: 20131007
  Receipt Date: 20131007
  Transmission Date: 20140711
  Serious: Yes (Hospitalization)
  Sender: FDA-Public Use
  Company Number: FR-UCBSA-099097

PATIENT
  Age: 60 Year
  Sex: Male

DRUGS (7)
  1. KEPPRA [Suspect]
     Dosage: DOSE: UNKNOWN
     Route: 048
     Dates: start: 2002
  2. TEGRETOL [Suspect]
     Dosage: DOSE: UNKNOWN
     Route: 048
     Dates: start: 1995
  3. OMEPRAZOLE [Suspect]
     Dosage: DOSE: UNKNOWN
     Route: 048
     Dates: start: 2004
  4. CRESTOR [Suspect]
     Dosage: DOSE: UNKNWON
     Route: 048
     Dates: start: 201304
  5. UROREC [Suspect]
     Dosage: DOSE: UNKNWON
     Route: 048
     Dates: start: 201205
  6. MESTINON [Suspect]
     Route: 048
     Dates: start: 2010
  7. RIVOTRIL [Suspect]
     Dosage: DOSE: UNKNOWN
     Route: 048
     Dates: start: 2010

REACTIONS (2)
  - Toxic skin eruption [Unknown]
  - Eczema nummular [Unknown]
